FAERS Safety Report 12358278 (Version 2)
Quarter: 2016Q3

REPORT INFORMATION
  Report Type: Spontaneous
  Country: US (occurrence: US)
  Receive Date: 20160512
  Receipt Date: 20160901
  Transmission Date: 20161109
  Serious: Yes (Other)
  Sender: FDA-Public Use
  Company Number: US-RECKITT BENCKISER HEALTHCARE INT LIMITED-RB-85289-2016

PATIENT
  Age: 4 Year
  Sex: Male

DRUGS (1)
  1. CHILDRENS MUCINEX MINI-MELTS CHEST CONGESTION [Suspect]
     Active Substance: GUAIFENESIN
     Indication: PRODUCT USED FOR UNKNOWN INDICATION
     Dosage: 1 DF, SINGLE
     Route: 065
     Dates: start: 20160428, end: 20160428

REACTIONS (3)
  - Urticaria [Recovered/Resolved]
  - Scratch [Recovered/Resolved]
  - Drug hypersensitivity [Recovered/Resolved]

NARRATIVE: CASE EVENT DATE: 20160428
